FAERS Safety Report 18978960 (Version 1)
Quarter: 2021Q1

REPORT INFORMATION
  Report Type: Spontaneous
  Country: IN (occurrence: IN)
  Receive Date: 20210308
  Receipt Date: 20210308
  Transmission Date: 20210420
  Serious: Yes (Other)
  Sender: FDA-Public Use
  Company Number: IN-EPICPHARMA-IN-2021EPCLIT00210

PATIENT
  Age: 65 Year
  Sex: Female

DRUGS (5)
  1. MOMATE [Interacting]
     Active Substance: MOMETASONE FUROATE
     Indication: ERYTHEMA MULTIFORME
     Route: 065
  2. PREDNISOLONE. [Interacting]
     Active Substance: PREDNISOLONE
     Indication: ERYTHEMA MULTIFORME
     Route: 065
  3. LIQUID PARAFFIN [Interacting]
     Active Substance: MINERAL OIL
     Indication: ERYTHEMA MULTIFORME
     Route: 065
  4. PHENYTOIN. [Suspect]
     Active Substance: PHENYTOIN
     Indication: SUBDURAL HAEMATOMA
     Route: 065
  5. HYDROXYZINE [Interacting]
     Active Substance: HYDROXYZINE HYDROCHLORIDE
     Indication: ERYTHEMA MULTIFORME
     Route: 065

REACTIONS (2)
  - Erythema multiforme [Recovered/Resolved]
  - Toxicity to various agents [Recovered/Resolved]
